FAERS Safety Report 9846771 (Version 1)
Quarter: 2014Q1

REPORT INFORMATION
  Report Type: Spontaneous
  Country: IT (occurrence: IT)
  Receive Date: 20140127
  Receipt Date: 20140127
  Transmission Date: 20141002
  Serious: Yes (Other)
  Sender: FDA-Public Use
  Company Number: IT-BAYER-2014-007640

PATIENT
  Sex: Male
  Weight: 1.69 kg

DRUGS (3)
  1. NIFEDIPINE (CC) [Suspect]
     Route: 064
  2. METHYLDOPA [Concomitant]
  3. BETAMETHASONE [Concomitant]

REACTIONS (3)
  - Premature baby [None]
  - Low birth weight baby [None]
  - Foetal exposure during pregnancy [None]
